FAERS Safety Report 4733289-X (Version None)
Quarter: 2005Q3

REPORT INFORMATION
  Report Type: 
  Country: None (occurrence: None)
  Receive Date: 20050721
  Receipt Date: 20050523
  Transmission Date: 20060218
  Serious: No
  Sender: FDA-Public Use
  Company Number: 2005SP000892

PATIENT
  Age: 56 Year
  Sex: Male
  Weight: 74.8435 kg

DRUGS (3)
  1. LUNESTA [Suspect]
     Dosage: 2 MG;HS;ORAL
     Route: 048
     Dates: start: 20050501
  2. TRAZODONE [Suspect]
  3. THORAZINE [Suspect]

REACTIONS (3)
  - ANXIETY [None]
  - FEELING JITTERY [None]
  - NERVOUSNESS [None]
